FAERS Safety Report 18715542 (Version 3)
Quarter: 2021Q2

REPORT INFORMATION
  Report Type: Report from Study
  Country: JP (occurrence: JP)
  Receive Date: 20210108
  Receipt Date: 20210517
  Transmission Date: 20210717
  Serious: Yes (Death, Hospitalization, Other)
  Sender: FDA-Public Use
  Company Number: JP-ASTELLAS-2021JP000124

PATIENT
  Age: 85 Year
  Sex: Male
  Weight: 60 kg

DRUGS (10)
  1. DILTIAZEM HYDROCHLORIDE. [Concomitant]
     Active Substance: DILTIAZEM HYDROCHLORIDE
     Indication: PRINZMETAL ANGINA
     Dosage: 60 MG/DAY, UNKNOWN FREQ.
     Route: 048
  2. NICORANDIL [Concomitant]
     Active Substance: NICORANDIL
     Indication: PRINZMETAL ANGINA
     Dosage: 5 MG/DAY, UNKNOWN FREQ.
     Route: 048
     Dates: end: 20191112
  3. POLARAMINE [Concomitant]
     Active Substance: DEXCHLORPHENIRAMINE MALEATE
     Indication: PROPHYLAXIS
     Dosage: 2 MG/DAY, UNKNOWN FREQ.
     Route: 048
  4. MYLOTARG [Suspect]
     Active Substance: GEMTUZUMAB OZOGAMICIN
     Indication: ACUTE MYELOID LEUKAEMIA
     Route: 065
     Dates: start: 20190718, end: 20190718
  5. ASP2215 [Suspect]
     Active Substance: GILTERITINIB
     Route: 048
     Dates: start: 20200311, end: 20200622
  6. OLOPATADINE HYDROCHLORIDE. [Concomitant]
     Active Substance: OLOPATADINE HYDROCHLORIDE
     Indication: PROPHYLAXIS
     Dosage: 10 MG/DAY, UNKNOWN FREQ.
     Route: 048
  7. CARBOCISTEINE [Concomitant]
     Active Substance: CARBOCYSTEINE
     Indication: PRODUCT USED FOR UNKNOWN INDICATION
     Dosage: 1500 MG/DAY, UNKNOWN FREQ.
     Route: 048
     Dates: end: 20200710
  8. LANSOPRAZOLE. [Concomitant]
     Active Substance: LANSOPRAZOLE
     Indication: PROPHYLAXIS
     Dosage: 15 MG/DAY, UNKNOWN FREQ.
     Route: 048
  9. ASP2215 [Suspect]
     Active Substance: GILTERITINIB
     Indication: ACUTE MYELOID LEUKAEMIA REFRACTORY
     Route: 048
     Dates: start: 20190720, end: 20200304
  10. COLONEL [Suspect]
     Active Substance: CALCIUM POLYCARBOPHIL
     Indication: IRRITABLE BOWEL SYNDROME
     Dosage: 1000 MG/DAY, UNKNOWN FREQ.
     Route: 048

REACTIONS (6)
  - Diarrhoea [Recovered/Resolved]
  - Myelosuppression [Recovered/Resolved]
  - Diarrhoea [Recovered/Resolved]
  - Pancreatic carcinoma [Fatal]
  - Hepatic function abnormal [Recovered/Resolved]
  - Off label use [Unknown]

NARRATIVE: CASE EVENT DATE: 20190722
